FAERS Safety Report 8032695-8 (Version None)
Quarter: 2012Q1

REPORT INFORMATION
  Report Type: 
  Country: None (occurrence: None)
  Receive Date: 20120110
  Receipt Date: 20120106
  Transmission Date: 20120608
  Serious: No
  Sender: FDA-Public Use
  Company Number: US-BAYER-2012-002417

PATIENT

DRUGS (1)
  1. NEXAVAR [Suspect]

REACTIONS (2)
  - RASH ERYTHEMATOUS [None]
  - PRURITUS [None]
